FAERS Safety Report 23732074 (Version 1)
Quarter: 2024Q2

REPORT INFORMATION
  Report Type: Spontaneous
  Country: US (occurrence: None)
  Receive Date: 20240410
  Receipt Date: 20240410
  Transmission Date: 20240716
  Serious: No
  Sender: FDA-Public Use
  Company Number: None

PATIENT
  Age: 54 Year
  Sex: Female
  Weight: 57.6 kg

DRUGS (2)
  1. PAXLOVID [Suspect]
     Active Substance: NIRMATRELVIR\RITONAVIR
     Indication: COVID-19
     Dosage: FREQUENCY : TWICE A DAY;?
     Route: 048
     Dates: start: 20240323, end: 20240327
  2. ACIPHEX [Concomitant]
     Active Substance: RABEPRAZOLE SODIUM

REACTIONS (8)
  - Photosensitivity reaction [None]
  - Skin burning sensation [None]
  - Burns second degree [None]
  - Pain [None]
  - Joint swelling [None]
  - Headache [None]
  - Skin erosion [None]
  - Skin exfoliation [None]

NARRATIVE: CASE EVENT DATE: 20240327
